FAERS Safety Report 7753114-2 (Version None)
Quarter: 2011Q3

REPORT INFORMATION
  Report Type: 
  Country: None (occurrence: None)
  Receive Date: 20110913
  Receipt Date: 20110829
  Transmission Date: 20111222
  Serious: Yes (Hospitalization)
  Sender: FDA-Public Use
  Company Number: 2011AP001844

PATIENT
  Age: 60 Year
  Sex: Male

DRUGS (12)
  1. PRAVASTATIN [Concomitant]
  2. TAMSULOSIN HCL [Concomitant]
  3. TENOFOVIR (TENOFOVIR)245 MG, QD [Suspect]
     Indication: HIV INFECTION
     Dosage: 245 MG, QD
  4. GABAPENTIN [Concomitant]
  5. ABACAVIR [Concomitant]
  6. ROSUVASTATIN [Suspect]
     Indication: HYPERLIPIDAEMIA
     Dosage: 40 MG
  7. LOPINAVIR AND RITONAVIR [Suspect]
     Indication: HIV INFECTION
     Dosage: 500 MG, BID
  8. CIPROFLOXACIN [Concomitant]
  9. AMITRIPTYLINE HCL [Concomitant]
  10. TRAMADOL HCL [Concomitant]
  11. GEMFIBROZIL [Suspect]
     Indication: HYPERLIPIDAEMIA
     Dosage: 600 MG, BID
  12. ASPIRIN [Concomitant]

REACTIONS (6)
  - HAEMATURIA [None]
  - DYSPNOEA EXERTIONAL [None]
  - RHABDOMYOLYSIS [None]
  - RENAL PAIN [None]
  - ABDOMINAL PAIN [None]
  - DRUG INTERACTION [None]
